FAERS Safety Report 5020029-2 (Version None)
Quarter: 2006Q2

REPORT INFORMATION
  Report Type: 
  Country: None (occurrence: None)
  Receive Date: 20060601
  Receipt Date: 20060517
  Transmission Date: 20061013
  Serious: Yes (Hospitalization)
  Sender: FDA-Public Use
  Company Number: 060518-0000468

PATIENT
  Age: 2 Year
  Sex: Female

DRUGS (3)
  1. ACTINOMYCIN D (DACTINOMYCIN FOR INJECTION) [Suspect]
     Indication: RHABDOMYOSARCOMA
     Dosage: EVERY 3 WEEKS;
  2. IFOSFAMIDE [Suspect]
     Indication: RHABDOMYOSARCOMA
     Dosage: EVERY 3 WEEKS;
  3. VINCRISTINE [Suspect]
     Indication: RHABDOMYOSARCOMA
     Dosage: EVERY 3 WEEKS;

REACTIONS (4)
  - ABDOMINAL DISCOMFORT [None]
  - DIARRHOEA [None]
  - SEPSIS [None]
  - STAPHYLOCOCCAL INFECTION [None]
